FAERS Safety Report 22031007 (Version 2)
Quarter: 2023Q1

REPORT INFORMATION
  Report Type: Spontaneous
  Country: JP (occurrence: JP)
  Receive Date: 20230223
  Receipt Date: 20230306
  Transmission Date: 20230417
  Serious: Yes (Other)
  Sender: FDA-Public Use
  Company Number: JP-BEH-2023155595

PATIENT
  Age: 5 Decade
  Sex: Male

DRUGS (1)
  1. HUMAN IMMUNOGLOBULIN G [Suspect]
     Active Substance: HUMAN IMMUNOGLOBULIN G
     Indication: Plasma cell myeloma
     Dosage: UNK
     Route: 042
     Dates: start: 201908

REACTIONS (3)
  - Plasma cell myeloma [Unknown]
  - Mass [Unknown]
  - Renal mass [Unknown]

NARRATIVE: CASE EVENT DATE: 20200701
